FAERS Safety Report 9524633 (Version 1)
Quarter: 2013Q3

REPORT INFORMATION
  Report Type: Spontaneous
  Country: US (occurrence: None)
  Receive Date: 20130912
  Receipt Date: 20130912
  Transmission Date: 20140515
  Serious: Yes (Disabling)
  Sender: FDA-Public Use
  Company Number: None

PATIENT
  Age: 67 Year
  Sex: Female
  Weight: 68.04 kg

DRUGS (8)
  1. DULOXETINE [Suspect]
     Indication: PAIN IN EXTREMITY
     Dosage: 30 MG, 1 CAPSULE, ONCE DAILY, PO
     Route: 048
     Dates: start: 20130813, end: 20130815
  2. DULOXETINE [Suspect]
     Indication: NECK PAIN
     Dosage: 30 MG, 1 CAPSULE, ONCE DAILY, PO
     Route: 048
     Dates: start: 20130813, end: 20130815
  3. LEVEMIR INSULIN [Concomitant]
  4. METFORMIN [Concomitant]
  5. GABAPENTIN [Concomitant]
  6. MULTIVITAMIN [Concomitant]
  7. VITAMIN D [Concomitant]
  8. OMEGA 3 [Concomitant]

REACTIONS (12)
  - Nausea [None]
  - Yawning [None]
  - Cold sweat [None]
  - Decreased appetite [None]
  - Parosmia [None]
  - Somnolence [None]
  - Fatigue [None]
  - Depression [None]
  - Disorientation [None]
  - Gait disturbance [None]
  - Dizziness [None]
  - Influenza [None]
